FAERS Safety Report 23402713 (Version 2)
Quarter: 2024Q1

REPORT INFORMATION
  Report Type: Spontaneous
  Country: MT (occurrence: MT)
  Receive Date: 20240115
  Receipt Date: 20240125
  Transmission Date: 20240410
  Serious: Yes (Hospitalization)
  Sender: FDA-Public Use
  Company Number: MT-PFIZER INC-PV202400002996

PATIENT
  Age: 27 Year
  Sex: Male
  Weight: 138 kg

DRUGS (7)
  1. RIMEGEPANT [Suspect]
     Active Substance: RIMEGEPANT
     Indication: Migraine prophylaxis
     Dosage: 75 MG, ALTERNATE DAYS
     Dates: start: 202310
  2. RIMEGEPANT [Suspect]
     Active Substance: RIMEGEPANT
     Dosage: 75 MG, DAILY WHEN HAVING AN EPISODE
     Dates: start: 202310
  3. HYDROCORTISONE [Concomitant]
     Active Substance: HYDROCORTISONE
     Dosage: 30 MG, DAILY
  4. LEVOTHYROXINE [Concomitant]
     Active Substance: LEVOTHYROXINE\LEVOTHYROXINE SODIUM
     Dosage: 150 MG, DAILY
  5. AMITRIPTYLINE [Concomitant]
     Active Substance: AMITRIPTYLINE
     Dosage: 10 MG, DAILY
  6. OMEPRAZOLE [Concomitant]
     Active Substance: OMEPRAZOLE
     Dosage: 20 MG, 2X/DAY
  7. TESTOSTERONE [Concomitant]
     Active Substance: TESTOSTERONE
     Dosage: INJECTIONS

REACTIONS (2)
  - Migraine [Not Recovered/Not Resolved]
  - Vomiting [Not Recovered/Not Resolved]

NARRATIVE: CASE EVENT DATE: 20240106
